FAERS Safety Report 19483528 (Version 2)
Quarter: 2021Q3

REPORT INFORMATION
  Report Type: Spontaneous
  Country: JP (occurrence: JP)
  Receive Date: 20210701
  Receipt Date: 20210824
  Transmission Date: 20211014
  Serious: Yes (Hospitalization, Other)
  Sender: FDA-Public Use
  Company Number: JP-PFIZER INC-2021727716

PATIENT
  Age: 95 Year
  Sex: Female
  Weight: 35 kg

DRUGS (8)
  1. DEPAS [ETIZOLAM] [Suspect]
     Active Substance: ETIZOLAM
     Indication: INSOMNIA
     Dosage: 2 DF, ONCE A DAY, BEFORE SLEEPING (THE PATIENT WAS ALLOWED TO ADJUST IT BY HERSELF)
     Route: 048
     Dates: end: 20201125
  2. BISOPROLOL [Concomitant]
     Active Substance: BISOPROLOL
     Dosage: UNK
  3. CALONAL [Concomitant]
     Active Substance: ACETAMINOPHEN
     Dosage: UNK
  4. FLUITRAN [Concomitant]
     Dosage: UNK
  5. REBAMIPIDE [Concomitant]
     Active Substance: REBAMIPIDE
     Dosage: UNK
  6. HALCION [Suspect]
     Active Substance: TRIAZOLAM
     Indication: INSOMNIA
     Dosage: 1 DF, ONCE A DAY, BEFORE SLEEPING
     Route: 048
     Dates: end: 20201125
  7. PL [Concomitant]
     Active Substance: ACETAMINOPHEN\CAFFEINE\PROMETHAZINE\SALICYLAMIDE
     Dosage: UNK
  8. CLOPIDOGREL [Concomitant]
     Active Substance: CLOPIDOGREL BISULFATE
     Dosage: UNK

REACTIONS (6)
  - Delirium [Unknown]
  - Fall [Unknown]
  - Contusion [Unknown]
  - Spinal compression fracture [Recovered/Resolved]
  - Dementia Alzheimer^s type [Unknown]
  - Cognitive disorder [Unknown]

NARRATIVE: CASE EVENT DATE: 20201110
